FAERS Safety Report 6659730-3 (Version None)
Quarter: 2010Q1

REPORT INFORMATION
  Report Type: 
  Country: None (occurrence: None)
  Receive Date: 20100325
  Receipt Date: 20100310
  Transmission Date: 20100710
  Serious: Yes (Other)
  Sender: FDA-Public Use
  Company Number: 2010030032

PATIENT
  Age: 50 Year
  Sex: Female

DRUGS (4)
  1. PENICILLAMINE [Suspect]
     Indication: HEPATO-LENTICULAR DEGENERATION
  2. METHOTREXATE [Concomitant]
  3. PREDNISOLONE [Concomitant]
  4. NONSTEROILDAL ANTIINFLAMMATORY [Concomitant]

REACTIONS (6)
  - BLOOD ALKALINE PHOSPHATASE INCREASED [None]
  - DRUG INEFFECTIVE [None]
  - GAMMA-GLUTAMYLTRANSFERASE INCREASED [None]
  - HEPATIC NEOPLASM MALIGNANT [None]
  - OSTEOARTHRITIS [None]
  - PSORIATIC ARTHROPATHY [None]
